FAERS Safety Report 7238922-9 (Version None)
Quarter: 2011Q1

REPORT INFORMATION
  Report Type: 
  Country: None (occurrence: None)
  Receive Date: 20110121
  Receipt Date: 20110113
  Transmission Date: 20110831
  Serious: Yes (Hospitalization)
  Sender: FDA-Public Use
  Company Number: NL-MEDIMMUNE-MEDI-0012212

PATIENT
  Sex: Male
  Weight: 7.53 kg

DRUGS (6)
  1. FUROSEMIDE [Concomitant]
     Dates: start: 20100101
  2. PUFF NOS [Concomitant]
  3. SYNAGIS [Suspect]
     Route: 030
     Dates: start: 20101119, end: 20101216
  4. SPIRONOLACTONE [Concomitant]
     Dates: start: 20100101
  5. LACTULOSE [Concomitant]
  6. SYNAGIS [Suspect]
     Route: 030
     Dates: start: 20110113, end: 20110113

REACTIONS (2)
  - WHEEZING [None]
  - SENSE OF OPPRESSION [None]
